FAERS Safety Report 4660783-2 (Version None)
Quarter: 2005Q2

REPORT INFORMATION
  Report Type: 
  Country: None (occurrence: None)
  Receive Date: 20050427
  Receipt Date: 20040420
  Transmission Date: 20051028
  Serious: Yes (Other)
  Sender: FDA-Public Use
  Company Number: US-JNJFOC-20040404883

PATIENT
  Age: 46 Year
  Sex: Male
  Weight: 77.1115 kg

DRUGS (3)
  1. ULTRAM [Suspect]
     Indication: LOWER LIMB FRACTURE
     Dosage: ORAL
     Route: 048
     Dates: start: 20040101
  2. KLONOPIN [Concomitant]
  3. PREVACID [Concomitant]

REACTIONS (1)
  - CONVULSION [None]
